FAERS Safety Report 9226491 (Version 2)
Quarter: 2014Q2

REPORT INFORMATION
  Report Type: Spontaneous
  Country: BR (occurrence: BR)
  Receive Date: 20130412
  Receipt Date: 20140409
  Transmission Date: 20141212
  Serious: Yes (Other)
  Sender: FDA-Public Use
  Company Number: BR-AMGEN-BRASP2013025251

PATIENT
  Age: 60 Year
  Sex: Male
  Weight: 59 kg

DRUGS (2)
  1. ENBREL [Suspect]
     Indication: RHEUMATOID ARTHRITIS
     Dosage: 50 MG, 1X/WEEK
     Route: 058
     Dates: start: 201104
  2. ENBREL [Suspect]
     Dosage: 50 MG, 1X/WEEK
     Route: 065

REACTIONS (6)
  - Hernia [Unknown]
  - Dry mouth [Unknown]
  - Dry eye [Unknown]
  - Eye irritation [Unknown]
  - Pain in extremity [Unknown]
  - Hyperaesthesia [Unknown]
